FAERS Safety Report 14553386 (Version 1)
Quarter: 2018Q1

REPORT INFORMATION
  Report Type: Report from Study
  Country: CA (occurrence: CA)
  Receive Date: 20180220
  Receipt Date: 20180220
  Transmission Date: 20180509
  Serious: Yes (Death, Other)
  Sender: FDA-Public Use
  Company Number: CA-AMGEN-CANSL2018021421

PATIENT
  Age: 59 Year
  Sex: Female

DRUGS (1)
  1. XGEVA [Suspect]
     Active Substance: DENOSUMAB
     Indication: BREAST CANCER
     Dosage: 120 MG/ 1.7 ML, UNK
     Route: 065
     Dates: start: 20171123

REACTIONS (1)
  - Death [Fatal]

NARRATIVE: CASE EVENT DATE: 201801
